FAERS Safety Report 5533684-5 (Version None)
Quarter: 2007Q4

REPORT INFORMATION
  Report Type: 
  Country: None (occurrence: None)
  Receive Date: 20071120
  Receipt Date: 20070720
  Transmission Date: 20080405
  Serious: No
  Sender: FDA-Public Use
  Company Number: WAES 0707USA02975

PATIENT
  Age: 64 Year
  Sex: Male
  Weight: 104.3273 kg

DRUGS (14)
  1. JANUVIA [Suspect]
     Indication: TYPE 2 DIABETES MELLITUS
     Dosage: 100 MG/DAILY/PO
     Route: 048
     Dates: start: 20070201
  2. COZAAR [Concomitant]
  3. LIPITOR [Concomitant]
  4. RHINOCORT [Concomitant]
  5. SINGULAIR [Concomitant]
  6. AMLODIPINE BESYLATE [Concomitant]
  7. ASPIRIN [Concomitant]
  8. BENAZEPRIL HYDROCHLORIDE [Concomitant]
  9. GLYBURIDE [Concomitant]
  10. HYDROCHLOROTHIAZIDE [Concomitant]
  11. INSULIN [Concomitant]
  12. LISINOPRIL [Concomitant]
  13. METFORMIN HCL [Concomitant]
  14. METOPROLOL SUCCINATE [Concomitant]

REACTIONS (4)
  - DRY MOUTH [None]
  - GLYCOSYLATED HAEMOGLOBIN INCREASED [None]
  - HEADACHE [None]
  - WEIGHT DECREASED [None]
